FAERS Safety Report 23446339 (Version 1)
Quarter: 2024Q1

REPORT INFORMATION
  Report Type: Spontaneous
  Country: ES (occurrence: ES)
  Receive Date: 20240126
  Receipt Date: 20240126
  Transmission Date: 20240410
  Serious: Yes (Other)
  Sender: FDA-Public Use
  Company Number: ES-PFIZER INC-PV202400004994

PATIENT
  Age: 64 Year
  Sex: Female

DRUGS (1)
  1. CISPLATIN [Suspect]
     Active Substance: CISPLATIN
     Indication: Squamous cell carcinoma of pharynx
     Dosage: CYCLICAL (WEEKLY CISPLATIN, RECEIVED 5 CYCLES, TOTAL DOSE 200 MG/M2)
     Route: 065
     Dates: end: 20210421

REACTIONS (3)
  - Neutropenia [Unknown]
  - Mucosal inflammation [Unknown]
  - Neoplasm progression [Unknown]
